FAERS Safety Report 9276067 (Version 1)
Quarter: 2012Q4

REPORT INFORMATION
  Report Type: Spontaneous
  Country: US (occurrence: None)
  Receive Date: 20121109
  Receipt Date: 20121109
  Transmission Date: 20130627
  Serious: Yes (Death)
  Sender: FDA-Public Use
  Company Number: 2012S1000743

PATIENT
  Age: 65 Year
  Sex: Female

DRUGS (5)
  1. CUBICIN [Suspect]
  2. TRIMETHOPRIM [Concomitant]
  3. SULFAMETHOXAZOLE [Concomitant]
  4. RIFAMPIN [Concomitant]
  5. LINEZOLID [Concomitant]

REACTIONS (7)
  - Blood creatine phosphokinase increased [None]
  - Blood creatinine increased [None]
  - Dyspnoea [None]
  - Septic embolus [None]
  - Pulmonary mass [None]
  - Endocarditis [None]
  - Tricuspid valve disease [None]
